FAERS Safety Report 6713974-0 (Version None)
Quarter: 2010Q2

REPORT INFORMATION
  Report Type: 
  Country: None (occurrence: None)
  Receive Date: 20100506
  Receipt Date: 20100427
  Transmission Date: 20101027
  Serious: Yes (Other)
  Sender: FDA-Public Use
  Company Number: GB-GILEAD-2010-0028164

PATIENT
  Age: 55 Year
  Sex: Male
  Weight: 80 kg

DRUGS (6)
  1. TRUVADA [Suspect]
     Indication: HIV INFECTION
     Dates: start: 20081002
  2. REYATAZ [Suspect]
     Indication: HIV INFECTION
     Route: 048
     Dates: start: 20081002
  3. RITONAVIR [Suspect]
     Dates: start: 20081002
  4. COMBIVIR [Concomitant]
     Dates: start: 20070717
  5. KALETRA [Concomitant]
     Dates: start: 20070717
  6. KALETRA [Concomitant]
     Dates: start: 20100316

REACTIONS (1)
  - DRUG RESISTANCE [None]
